FAERS Safety Report 9339324 (Version 2)
Quarter: 2013Q3

REPORT INFORMATION
  Report Type: Spontaneous
  Country: US (occurrence: US)
  Receive Date: 20130610
  Receipt Date: 20130705
  Transmission Date: 20140515
  Serious: Yes (Other)
  Sender: FDA-Public Use
  Company Number: US-JNJFOC-20130522872

PATIENT
  Age: 40 Year
  Sex: Male
  Weight: 86.18 kg

DRUGS (9)
  1. STELARA [Suspect]
     Indication: PSORIASIS
     Dosage: 12TH INJECTION WAS GIVEN AND 13TH INJECTION WAS SCHEDULED ON 02-JUL-2013
     Route: 058
     Dates: start: 20130405
  2. STELARA [Suspect]
     Indication: PSORIASIS
     Dosage: 12TH INJECTION WAS GIVEN AND 13TH INJECTION WAS SCHEDULED ON 02-JUL-2013
     Route: 058
     Dates: start: 20100517
  3. CLOBEX [Concomitant]
     Dosage: 0.05%, 2 SPRAY AS NEEDED
     Route: 061
  4. HUMALOG [Concomitant]
     Route: 058
  5. LANTUS [Concomitant]
     Route: 058
  6. PRILOSEC [Concomitant]
     Dosage: WHILE ON CYCLOSPORINE FOR REFLUX
     Route: 048
  7. TACLONEX [Concomitant]
     Route: 065
  8. DIFLORASONE DIACETATE [Concomitant]
     Dosage: TO A/A ON EARS
     Route: 061
     Dates: start: 20101216
  9. DIFLORASONE DIACETATE [Concomitant]
     Dosage: 1 THIN LAYER 2 TIMES A DAY
     Route: 061

REACTIONS (1)
  - Benign spleen tumour [Unknown]
